FAERS Safety Report 20714174 (Version 1)
Quarter: 2022Q2

REPORT INFORMATION
  Report Type: Spontaneous
  Country: US (occurrence: None)
  Receive Date: 20220415
  Receipt Date: 20220415
  Transmission Date: 20220720
  Serious: Yes (Other)
  Sender: FDA-Public Use
  Company Number: None

PATIENT
  Age: 68 Year
  Sex: Female
  Weight: 81 kg

DRUGS (10)
  1. ELIQUIS [Suspect]
     Active Substance: APIXABAN
     Indication: Pulmonary embolism
     Dosage: OTHER QUANTITY : 14 TABLET(S);?FREQUENCY : EVERY 12 HOURS;?
     Route: 048
     Dates: start: 20220302
  2. TOPROL XL [Concomitant]
     Active Substance: METOPROLOL SUCCINATE
  3. PRAVASTATIN [Concomitant]
     Active Substance: PRAVASTATIN
  4. ELIQUIS [Concomitant]
     Active Substance: APIXABAN
  5. VITAMINS [Concomitant]
     Active Substance: VITAMINS
  6. FISH OIL [Concomitant]
     Active Substance: FISH OIL
  7. VITAMIN D [Concomitant]
     Active Substance: VITAMIN D NOS
  8. B COMPLEX WITH C [Concomitant]
  9. BIOTIN [Concomitant]
     Active Substance: BIOTIN
  10. ZINC [Concomitant]
     Active Substance: ZINC

REACTIONS (1)
  - Alopecia [None]

NARRATIVE: CASE EVENT DATE: 20220305
